FAERS Safety Report 9882630 (Version 2)
Quarter: 2016Q2

REPORT INFORMATION
  Report Type: Spontaneous
  Country: US (occurrence: US)
  Receive Date: 20140207
  Receipt Date: 20160604
  Transmission Date: 20160815
  Serious: Yes (Hospitalization, Other)
  Sender: FDA-Public Use
  Company Number: US-ASTRAZENECA-2014SE07102

PATIENT
  Age: 684 Month
  Sex: Male

DRUGS (24)
  1. FERROUS SULFATE. [Concomitant]
     Active Substance: FERROUS SULFATE
     Indication: MINERAL SUPPLEMENTATION
     Dosage: 325.0MG UNKNOWN
  2. CYMBALTA [Concomitant]
     Active Substance: DULOXETINE HYDROCHLORIDE
     Indication: AFFECTIVE DISORDER
     Dosage: 60.0MG UNKNOWN
  3. CIPROFLOXACIN HCL [Concomitant]
     Active Substance: CIPROFLOXACIN HYDROCHLORIDE
     Indication: WOUND
  4. ZESTRIL [Suspect]
     Active Substance: LISINOPRIL
     Route: 048
  5. PROPRANOLOL [Concomitant]
     Active Substance: PROPRANOLOL\PROPRANOLOL HYDROCHLORIDE
     Indication: HYPERTENSION
     Dosage: 10.0MG UNKNOWN
  6. MILK THISTLE [Concomitant]
     Active Substance: MILK THISTLE
     Indication: LIVER DISORDER
     Dosage: 240.0UG UNKNOWN
  7. CYMBALTA [Concomitant]
     Active Substance: DULOXETINE HYDROCHLORIDE
     Indication: PAIN
     Dosage: 60.0MG UNKNOWN
  8. SLOMAG [Concomitant]
  9. MULTIVITAMIN [Concomitant]
     Active Substance: VITAMINS
     Indication: VITAMIN SUPPLEMENTATION
  10. B COMPLEX VITAMIN [Concomitant]
  11. SPIRONOLACTONE. [Concomitant]
     Active Substance: SPIRONOLACTONE
     Indication: DIURETIC THERAPY
     Dosage: 25.0MG UNKNOWN
  12. LYRICA [Concomitant]
     Active Substance: PREGABALIN
     Indication: NEUROPATHY PERIPHERAL
  13. RIFAMPIN. [Concomitant]
     Active Substance: RIFAMPIN
     Indication: STAPHYLOCOCCAL INFECTION
     Dosage: 150.0MG UNKNOWN
  14. FOLIC ACID. [Concomitant]
     Active Substance: FOLIC ACID
     Dosage: 1.0MG UNKNOWN
  15. COLACE [Concomitant]
     Active Substance: DOCUSATE SODIUM
     Indication: LAXATIVE SUPPORTIVE CARE
     Dosage: 100.0MG UNKNOWN
  16. TEMAZEPAM. [Concomitant]
     Active Substance: TEMAZEPAM
     Indication: SLEEP DISORDER
     Dosage: 30.0MG AS REQUIRED
  17. OMEPRAZOLE. [Suspect]
     Active Substance: OMEPRAZOLE
     Indication: HYPERCHLORHYDRIA
     Dosage: 20.0MG UNKNOWN
     Route: 048
  18. OXYCODONE [Concomitant]
     Active Substance: OXYCODONE
     Indication: PAIN
  19. RIFAMPIN. [Concomitant]
     Active Substance: RIFAMPIN
     Indication: SKIN ULCER
     Dosage: 150.0MG UNKNOWN
  20. MINOCYCLINE [Concomitant]
     Active Substance: MINOCYCLINE\MINOCYCLINE HYDROCHLORIDE
     Indication: STAPHYLOCOCCAL INFECTION
     Dosage: 100.0MG UNKNOWN
  21. MINOCYCLINE [Concomitant]
     Active Substance: MINOCYCLINE\MINOCYCLINE HYDROCHLORIDE
     Indication: SKIN ULCER
     Dosage: 100.0MG UNKNOWN
  22. METANX [Concomitant]
     Active Substance: LEVOMEFOLATE CALCIUM\METHYLCOBALAMIN\PYRIDOXAL PHOSPHATE ANHYDROUS
     Indication: NERVE INJURY
     Dosage: 50.0MG UNKNOWN
  23. LEVOTHYROXINE. [Concomitant]
     Active Substance: LEVOTHYROXINE
     Indication: THYROID DISORDER
     Dosage: 50.0MG UNKNOWN
  24. METANX [Concomitant]
     Active Substance: LEVOMEFOLATE CALCIUM\METHYLCOBALAMIN\PYRIDOXAL PHOSPHATE ANHYDROUS
     Indication: PAIN
     Dosage: 50.0MG UNKNOWN

REACTIONS (30)
  - Varices oesophageal [Unknown]
  - Anaemia [Unknown]
  - Hypertension [Unknown]
  - Hyperchlorhydria [Unknown]
  - Wrist fracture [Unknown]
  - Fall [Unknown]
  - Fibula fracture [Unknown]
  - Hyperthyroidism [Unknown]
  - Immunodeficiency [Unknown]
  - Hepatic cirrhosis [Unknown]
  - Splenic varices [Unknown]
  - Compression fracture [Unknown]
  - Limb fracture [Not Recovered/Not Resolved]
  - Ankle fracture [Unknown]
  - Staphylococcal infection [Unknown]
  - Sleep disorder [Unknown]
  - Skin ulcer [Unknown]
  - Pain [Unknown]
  - Neuropathy peripheral [Unknown]
  - Psoriasis [Unknown]
  - Thyroid disorder [Unknown]
  - Drug hypersensitivity [Unknown]
  - Arthritis [Unknown]
  - Nephrolithiasis [Unknown]
  - Neuralgia [Unknown]
  - Wound [Unknown]
  - Lower limb fracture [Unknown]
  - Tibia fracture [Unknown]
  - Osteomyelitis [Unknown]
  - Depression [Unknown]

NARRATIVE: CASE EVENT DATE: 201111
